FAERS Safety Report 16970758 (Version 1)
Quarter: 2019Q4

REPORT INFORMATION
  Report Type: Spontaneous
  Country: US (occurrence: US)
  Receive Date: 20191029
  Receipt Date: 20191029
  Transmission Date: 20200122
  Serious: Yes (Hospitalization)
  Sender: FDA-Public Use
  Company Number: US-TOLMAR, INC.-19US000780

PATIENT
  Age: 72 Year
  Sex: Male
  Weight: 84.35 kg

DRUGS (4)
  1. CALCIPOTRIENE. [Suspect]
     Active Substance: CALCIPOTRIENE
     Indication: ERYTHEMA
     Dosage: UNK
     Dates: end: 20180920
  2. CORTISONE [Suspect]
     Active Substance: CORTISONE
     Indication: ERYTHEMA
     Dosage: UNK
     Dates: end: 20180920
  3. EUCRISA [Suspect]
     Active Substance: CRISABOROLE
     Indication: ERYTHEMA
     Dosage: UNK
     Dates: end: 20180920
  4. MOMETASONE FUROATE. [Suspect]
     Active Substance: MOMETASONE FUROATE
     Indication: ERYTHEMA
     Dosage: UNK
     Dates: end: 20180920

REACTIONS (3)
  - Hypoaesthesia [Not Recovered/Not Resolved]
  - Erythema [Not Recovered/Not Resolved]
  - Nerve compression [Not Recovered/Not Resolved]

NARRATIVE: CASE EVENT DATE: 20180917
